FAERS Safety Report 6195943-5 (Version None)
Quarter: 2009Q2

REPORT INFORMATION
  Report Type: 
  Country: None (occurrence: None)
  Receive Date: 20090520
  Receipt Date: 20090512
  Transmission Date: 20091009
  Serious: Yes (Hospitalization)
  Sender: FDA-Public Use
  Company Number: US-JNJFOC-20090502920

PATIENT
  Sex: Female
  Weight: 39.92 kg

DRUGS (13)
  1. FENTANYL TRANSDERMAL SYSTEM [Suspect]
     Indication: ARTHRALGIA
     Route: 062
  2. FENTANYL TRANSDERMAL SYSTEM [Suspect]
     Indication: BACK PAIN
     Route: 062
  3. FENTANYL TRANSDERMAL SYSTEM [Suspect]
     Indication: NECK PAIN
     Route: 062
  4. DURAGESIC-100 [Suspect]
     Indication: ARTHRALGIA
     Route: 062
  5. DURAGESIC-100 [Suspect]
     Indication: BACK PAIN
     Route: 062
  6. DURAGESIC-100 [Suspect]
     Indication: NECK PAIN
     Route: 062
  7. LYRICA [Suspect]
     Indication: DEPRESSION
  8. NADOLOL [Concomitant]
     Indication: HYPERTENSION
     Route: 048
  9. ESTRADIOL [Concomitant]
     Indication: HYSTERECTOMY
     Route: 048
  10. METHYLIN [Concomitant]
     Indication: DEPRESSION
     Dosage: DAILY
     Route: 048
  11. ATENOLOL [Concomitant]
     Indication: HYPERTENSION
     Route: 048
  12. CLONAZEPAM [Concomitant]
     Indication: DEPRESSION
     Route: 048
  13. MUSCLE RELAXANTS [Concomitant]
     Indication: MUSCLE RELAXANT THERAPY
     Route: 048

REACTIONS (21)
  - ANOREXIA [None]
  - ARTHRALGIA [None]
  - ASTHENIA [None]
  - BACK PAIN [None]
  - BLADDER DISORDER [None]
  - BLOOD IRON DECREASED [None]
  - CYSTITIS [None]
  - CYSTITIS INTERSTITIAL [None]
  - DEPRESSION [None]
  - HYPOTENSION [None]
  - HYPOTHYROIDISM [None]
  - INFLUENZA LIKE ILLNESS [None]
  - KIDNEY INFECTION [None]
  - MUSCULAR WEAKNESS [None]
  - NECK PAIN [None]
  - PAIN [None]
  - RED BLOOD CELL COUNT DECREASED [None]
  - RENAL FAILURE [None]
  - THYROID NEOPLASM [None]
  - VIRAL INFECTION [None]
  - WEIGHT INCREASED [None]
